FAERS Safety Report 16462003 (Version 2)
Quarter: 2020Q1

REPORT INFORMATION
  Report Type: Spontaneous
  Country: CA (occurrence: CA)
  Receive Date: 20190621
  Receipt Date: 20200213
  Transmission Date: 20200409
  Serious: Yes (Other)
  Sender: FDA-Public Use
  Company Number: CA-AUROBINDO-AUR-APL-2019-034305

PATIENT
  Age: 25 Year
  Sex: Female

DRUGS (15)
  1. XOLAIR [Suspect]
     Active Substance: OMALIZUMAB
     Indication: ASTHMA
     Dosage: 150 MILLIGRAM
     Route: 058
  2. AZITHROMYCIN ANHYDROUS. [Suspect]
     Active Substance: AZITHROMYCIN ANHYDROUS
     Indication: PRODUCT USED FOR UNKNOWN INDICATION
     Dosage: UNK
     Route: 065
  3. LEVOFLOXACIN. [Suspect]
     Active Substance: LEVOFLOXACIN
     Indication: PRODUCT USED FOR UNKNOWN INDICATION
     Dosage: UNK
     Route: 065
  4. OMALIZUMAB. [Suspect]
     Active Substance: OMALIZUMAB
     Indication: ASTHMA
     Dosage: 300 MILLIGRAM,1 EVERY 2 WEEK
     Route: 065
  5. DIPHENHYDRAMINE HYDROCHLORIDE. [Suspect]
     Active Substance: DIPHENHYDRAMINE HYDROCHLORIDE
     Indication: SWELLING
     Dosage: UNK
     Route: 065
  6. OMALIZUMAB. [Suspect]
     Active Substance: OMALIZUMAB
     Indication: CHRONIC SPONTANEOUS URTICARIA
     Dosage: UNK
     Route: 065
  7. RIFADIN [Suspect]
     Active Substance: RIFAMPIN
     Indication: PRODUCT USED FOR UNKNOWN INDICATION
     Dosage: UNK
     Route: 065
  8. DIPHENHYDRAMINE HYDROCHLORIDE. [Suspect]
     Active Substance: DIPHENHYDRAMINE HYDROCHLORIDE
     Indication: PRURITUS
  9. REACTINE (CETIRIZINE HYDROCHLORIDE) [Suspect]
     Active Substance: CETIRIZINE HYDROCHLORIDE
     Indication: MECHANICAL URTICARIA
     Dosage: 10 MILLIGRAM
     Route: 065
  10. DIPHENHYDRAMINE HYDROCHLORIDE. [Suspect]
     Active Substance: DIPHENHYDRAMINE HYDROCHLORIDE
     Indication: RASH
  11. OMALIZUMAB. [Suspect]
     Active Substance: OMALIZUMAB
     Dosage: 150 MILLIGRAM
     Route: 065
  12. DIPHENHYDRAMINE HYDROCHLORIDE. [Suspect]
     Active Substance: DIPHENHYDRAMINE HYDROCHLORIDE
     Indication: SKIN REACTION
  13. REACTINE (CETIRIZINE HYDROCHLORIDE) [Suspect]
     Active Substance: CETIRIZINE HYDROCHLORIDE
     Indication: SEASONAL ALLERGY
     Dosage: 20 MILLIGRAM, EVERY OTHER DAY
     Route: 065
  14. XOLAIR [Suspect]
     Active Substance: OMALIZUMAB
     Indication: CHRONIC SPONTANEOUS URTICARIA
     Dosage: 300 MILLIGRAM, 1 EVERY 2 WEEK
     Route: 058
  15. RIFAMPIN. [Suspect]
     Active Substance: RIFAMPIN
     Indication: PRODUCT USED FOR UNKNOWN INDICATION
     Dosage: UNK
     Route: 065

REACTIONS (10)
  - Throat irritation [Recovered/Resolved]
  - Cystic fibrosis pancreatic [Recovered/Resolved]
  - Hepatic cirrhosis [Recovered/Resolved]
  - Drug ineffective [Recovered/Resolved]
  - Pyrexia [Recovered/Resolved]
  - Seasonal allergy [Recovered/Resolved]
  - Injection site pain [Recovered/Resolved]
  - Mechanical urticaria [Recovered/Resolved]
  - Pruritus [Recovered/Resolved]
  - Skin reaction [Recovered/Resolved]
